FAERS Safety Report 14363343 (Version 1)
Quarter: 2018Q1

REPORT INFORMATION
  Report Type: Spontaneous
  Country: US (occurrence: US)
  Receive Date: 20180105
  Receipt Date: 20180105
  Transmission Date: 20180509
  Serious: No
  Sender: FDA-Public Use
  Company Number: None

PATIENT
  Age: 21 Year
  Sex: Male

DRUGS (1)
  1. INVEGA [Suspect]
     Active Substance: PALIPERIDONE

REACTIONS (3)
  - Drug dose omission [None]
  - Drug dispensing error [None]
  - Drug prescribing error [None]

NARRATIVE: CASE EVENT DATE: 20171228
